FAERS Safety Report 10088908 (Version 1)
Quarter: 2014Q2

REPORT INFORMATION
  Report Type: Report from Study
  Country: DK (occurrence: DK)
  Receive Date: 20140421
  Receipt Date: 20140421
  Transmission Date: 20141212
  Serious: Yes (Hospitalization)
  Sender: FDA-Public Use
  Company Number: DK-JNJFOC-20140410700

PATIENT
  Age: 76 Year
  Sex: Female
  Weight: 75 kg

DRUGS (19)
  1. RIVAROXABAN [Suspect]
     Indication: THROMBOSIS PROPHYLAXIS
     Route: 048
     Dates: start: 20140107, end: 20140128
  2. RIVAROXABAN [Suspect]
     Indication: THROMBOSIS PROPHYLAXIS
     Route: 048
     Dates: start: 20140129, end: 20140305
  3. RIVAROXABAN [Suspect]
     Indication: DEEP VEIN THROMBOSIS
     Route: 048
     Dates: start: 20140107, end: 20140128
  4. RIVAROXABAN [Suspect]
     Indication: DEEP VEIN THROMBOSIS
     Route: 048
     Dates: start: 20140129, end: 20140305
  5. PARACETAMOL [Concomitant]
     Route: 065
     Dates: start: 2008
  6. TRAMADOL [Concomitant]
     Route: 065
     Dates: start: 20080801
  7. DICLOFENAC SODIUM [Concomitant]
     Route: 065
     Dates: start: 20080801
  8. GLUCOSAMINE [Concomitant]
     Route: 065
     Dates: start: 20080801
  9. INNOHEP [Concomitant]
     Indication: DEEP VEIN THROMBOSIS
     Route: 065
     Dates: start: 20140107, end: 20140107
  10. PANTOPRAZOLE [Concomitant]
     Route: 065
     Dates: start: 20140110
  11. ACTIVELLE (ESTRADIOL AND NORETHINDRONE) [Concomitant]
     Route: 065
     Dates: start: 1994, end: 20140114
  12. TRIMETHOPRIM [Concomitant]
     Route: 065
     Dates: start: 20140227, end: 20140303
  13. WARFARIN [Concomitant]
     Indication: DEEP VEIN THROMBOSIS
     Route: 048
     Dates: start: 20140307
  14. WARFARIN [Concomitant]
     Indication: DEEP VEIN THROMBOSIS
     Route: 048
     Dates: start: 20140106, end: 20140106
  15. WARFARIN [Concomitant]
     Indication: DEEP VEIN THROMBOSIS
     Route: 048
     Dates: start: 20140307
  16. WARFARIN [Concomitant]
     Indication: DEEP VEIN THROMBOSIS
     Route: 048
     Dates: start: 20140106, end: 20140106
  17. LOSARTAN [Concomitant]
     Route: 065
     Dates: start: 2011
  18. BENDROFLUMETHIAZIDE [Concomitant]
     Route: 065
     Dates: start: 2011
  19. SULFAMETIZOL [Concomitant]
     Route: 065
     Dates: start: 20140127, end: 20140203

REACTIONS (2)
  - Blood creatinine increased [Recovered/Resolved]
  - Constipation [Recovered/Resolved]
